FAERS Safety Report 10419602 (Version 2)
Quarter: 2014Q3

REPORT INFORMATION
  Report Type: Spontaneous
  Country: JP (occurrence: JP)
  Receive Date: 20140829
  Receipt Date: 20140910
  Transmission Date: 20150326
  Serious: Yes (Hospitalization, Other)
  Sender: FDA-Public Use
  Company Number: JP-TAKEDA-2014JNJ005060

PATIENT

DRUGS (21)
  1. VELCADE [Suspect]
     Active Substance: BORTEZOMIB
     Dosage: 1.3 MG/M2, UNK
     Route: 058
     Dates: start: 20140627, end: 20140627
  2. VELCADE [Suspect]
     Active Substance: BORTEZOMIB
     Dosage: 1.3 UNK, UNK
     Route: 058
     Dates: start: 20140704, end: 20140704
  3. METHOTREXATE [Suspect]
     Active Substance: METHOTREXATE
     Dosage: 12 MG, 1/WEEK
     Route: 048
     Dates: start: 20121216
  4. CALONAL [Concomitant]
     Active Substance: ACETAMINOPHEN
     Indication: PYREXIA
     Dosage: 400 MG, UNK
     Route: 048
     Dates: start: 20140628
  5. VELCADE [Suspect]
     Active Substance: BORTEZOMIB
     Dosage: 1.3 UNK, UNK
     Route: 058
     Dates: start: 20140729, end: 20140729
  6. PREDONINE [Concomitant]
     Active Substance: PREDNISOLONE\PREDNISOLONE ACETATE\PREDNISOLONE SODIUM SUCCINATE
     Indication: SYSTEMIC LUPUS ERYTHEMATOSUS
     Dosage: 30 MG, BID
     Route: 048
     Dates: start: 20140722, end: 20140813
  7. FOLIAMIN [Concomitant]
     Active Substance: FOLIC ACID
     Indication: PROPHYLAXIS
     Dosage: 5 MG, 1/WEEK
     Route: 048
     Dates: start: 20120903, end: 20140812
  8. HACHIAZULE                         /00317302/ [Concomitant]
     Indication: INFECTION PROPHYLAXIS
     Dosage: 6 MG, UNK
     Dates: start: 20090316
  9. FINIBAX [Concomitant]
     Active Substance: DORIPENEM MONOHYDRATE
     Indication: CYTOMEGALOVIRUS INFECTION
     Dosage: 0.75 MG, UNK
     Route: 042
     Dates: start: 20140731, end: 20140804
  10. VELCADE [Suspect]
     Active Substance: BORTEZOMIB
     Dosage: 1.3 UNK, UNK
     Route: 058
     Dates: start: 20140725, end: 20140725
  11. FOLIAMIN [Concomitant]
     Active Substance: FOLIC ACID
     Dosage: 5 MG, UNK
     Route: 048
     Dates: start: 20140813
  12. ACTONEL [Concomitant]
     Active Substance: RISEDRONATE SODIUM
     Indication: OSTEOPOROSIS PROPHYLAXIS
     Dosage: 17.5 MG, QD
     Route: 048
     Dates: start: 20090516
  13. VELCADE [Suspect]
     Active Substance: BORTEZOMIB
     Dosage: 1.3 UNK, UNK
     Route: 058
     Dates: start: 20140722, end: 20140722
  14. METHOTREXATE [Suspect]
     Active Substance: METHOTREXATE
     Indication: SYSTEMIC LUPUS ERYTHEMATOSUS
     Dosage: 16 MG, 1/WEEK
     Route: 048
     Dates: start: 20120901
  15. ASPARA POTASSIUM [Concomitant]
     Active Substance: POTASSIUM ASPARTATE
     Indication: HYPOKALAEMIA
     Dosage: 300 MG, QD
     Route: 048
     Dates: start: 20140714
  16. ISONARIF [Concomitant]
     Active Substance: ISONIAZID\RIFAMPIN
     Indication: ANTIBIOTIC PROPHYLAXIS
     Dosage: 300 MG, TID
     Route: 048
     Dates: start: 20090331
  17. TAKEPRON [Concomitant]
     Active Substance: LANSOPRAZOLE
     Indication: GASTRITIS PROPHYLAXIS
     Dosage: 15 MG, QD
     Route: 048
     Dates: start: 20090313
  18. VELCADE [Suspect]
     Active Substance: BORTEZOMIB
     Indication: SYSTEMIC LUPUS ERYTHEMATOSUS
     Dosage: 1.3 MG/M2, UNK
     Route: 058
     Dates: start: 20140624, end: 20140624
  19. PREDONINE [Concomitant]
     Active Substance: PREDNISOLONE\PREDNISOLONE ACETATE\PREDNISOLONE SODIUM SUCCINATE
     Dosage: 27.5 MG, BID
     Route: 048
     Dates: start: 20140814
  20. MAGLAX [Concomitant]
     Active Substance: MAGNESIUM OXIDE
     Indication: CONSTIPATION
     Dosage: 990 MG, TID
     Route: 048
     Dates: start: 20140801
  21. HALIZON [Concomitant]
     Indication: ANTIFUNGAL PROPHYLAXIS
     Dosage: 3 ML, QD
     Route: 048
     Dates: start: 20140801

REACTIONS (2)
  - Cytomegalovirus infection [Unknown]
  - Hepatic function abnormal [Recovered/Resolved]

NARRATIVE: CASE EVENT DATE: 20140730
